FAERS Safety Report 17704906 (Version 4)
Quarter: 2020Q3

REPORT INFORMATION
  Report Type: Spontaneous
  Country: US (occurrence: US)
  Receive Date: 20200424
  Receipt Date: 20200828
  Transmission Date: 20201102
  Serious: Yes (Other)
  Sender: FDA-Public Use
  Company Number: US-SUNOVION-2020SUN001203

PATIENT
  Age: 82 Year
  Sex: Male

DRUGS (15)
  1. FYCOMPA [Suspect]
     Active Substance: PERAMPANEL
     Dosage: 7 MG, QD
     Route: 048
     Dates: start: 20200207, end: 20200220
  2. FYCOMPA [Suspect]
     Active Substance: PERAMPANEL
     Dosage: 6 MG, QD
     Route: 048
     Dates: start: 20191208, end: 20200206
  3. APTIOM [Suspect]
     Active Substance: ESLICARBAZEPINE ACETATE
     Dosage: 200 MG, QD
     Route: 048
  4. KEPPRA [Suspect]
     Active Substance: LEVETIRACETAM
     Dosage: 1900 MG, TOTAL QD DOSE
     Dates: start: 2020
  5. APTIOM [Suspect]
     Active Substance: ESLICARBAZEPINE ACETATE
     Indication: PARTIAL SEIZURES
     Dosage: 200 MG, QD
     Route: 048
  6. APTIOM [Suspect]
     Active Substance: ESLICARBAZEPINE ACETATE
     Dosage: 50 MG, BID
     Route: 048
  7. FYCOMPA [Suspect]
     Active Substance: PERAMPANEL
     Dosage: 4 MG, QD
     Route: 048
     Dates: start: 20191201, end: 20191207
  8. APTIOM [Suspect]
     Active Substance: ESLICARBAZEPINE ACETATE
     Dosage: 800 MG
     Route: 048
  9. APTIOM [Suspect]
     Active Substance: ESLICARBAZEPINE ACETATE
     Dosage: DOSE UNKNOWN (SLOW UPTITRATION)
     Route: 048
  10. APTIOM [Suspect]
     Active Substance: ESLICARBAZEPINE ACETATE
     Dosage: 700 MG, QD
     Route: 048
     Dates: start: 2020, end: 2020
  11. FYCOMPA [Suspect]
     Active Substance: PERAMPANEL
     Dosage: 2 MG, QD
     Route: 048
     Dates: start: 20191123, end: 20191130
  12. APTIOM [Suspect]
     Active Substance: ESLICARBAZEPINE ACETATE
     Dosage: DOSE UNKNOWN (SLOW DOWN? TITRATION
     Route: 048
     Dates: start: 2020, end: 2020
  13. APTIOM [Suspect]
     Active Substance: ESLICARBAZEPINE ACETATE
     Dosage: UNK
  14. FYCOMPA [Suspect]
     Active Substance: PERAMPANEL
     Indication: PARTIAL SEIZURES
     Dosage: 8 MG, QD
     Route: 048
     Dates: start: 20200221
  15. KEPPRA [Suspect]
     Active Substance: LEVETIRACETAM
     Indication: PRODUCT USED FOR UNKNOWN INDICATION
     Dosage: 750 MG, BID

REACTIONS (8)
  - Epileptic aura [Unknown]
  - Balance disorder [Unknown]
  - Underdose [Unknown]
  - Off label use [Unknown]
  - Drug interaction [Unknown]
  - Partial seizures [Recovered/Resolved]
  - Constipation [Unknown]
  - Gait inability [Unknown]

NARRATIVE: CASE EVENT DATE: 2020
